FAERS Safety Report 8054925 (Version 4)
Quarter: 2014Q2

REPORT INFORMATION
  Report Type: Spontaneous
  Country: US (occurrence: US)
  Receive Date: 20110726
  Receipt Date: 20140408
  Transmission Date: 20141212
  Serious: Yes (Hospitalization)
  Sender: FDA-Public Use
  Company Number: US-GLAXOSMITHKLINE-A0929534A

PATIENT
  Age: 55 Year
  Sex: Male

DRUGS (18)
  1. ADVAIR [Suspect]
     Indication: CHRONIC OBSTRUCTIVE PULMONARY DISEASE
     Dosage: 1PUFF TWICE PER DAY
     Route: 055
  2. XANAX [Concomitant]
  3. NEUROTIN [Concomitant]
  4. PERCOCET [Concomitant]
  5. ALBUTEROL [Concomitant]
  6. DEXLANSOPRAZOLE [Concomitant]
  7. WELLBUTRIN [Concomitant]
  8. KLONOPIN [Concomitant]
  9. LISINOPRIL [Concomitant]
  10. ROBAXIN [Concomitant]
  11. GABAPENTIN [Concomitant]
  12. MULTIVITAMINS [Concomitant]
  13. PRILOSEC [Concomitant]
  14. CREON [Concomitant]
  15. LIPITOR [Concomitant]
  16. ANTIBIOTIC [Concomitant]
  17. STEROID [Concomitant]
  18. OXYGEN [Concomitant]

REACTIONS (8)
  - Respiratory failure [Recovering/Resolving]
  - Pneumonia [Unknown]
  - Cholecystectomy [Unknown]
  - Hernia repair [Unknown]
  - Gastrointestinal disorder [Recovering/Resolving]
  - Blood sodium decreased [Recovering/Resolving]
  - Blood potassium decreased [Recovering/Resolving]
  - Electrolyte imbalance [Recovering/Resolving]
